FAERS Safety Report 5636800-X (Version None)
Quarter: 2008Q1

REPORT INFORMATION
  Report Type: 
  Country: None (occurrence: None)
  Receive Date: 20080219
  Receipt Date: 20080219
  Transmission Date: 20080703
  Serious: Yes (Hospitalization)
  Sender: FDA-Public Use
  Company Number: None

PATIENT
  Age: 53 Year
  Sex: Male

DRUGS (2)
  1. ASPIRIN [Suspect]
     Dosage: 81MG EVERY DAY PO
     Route: 048
     Dates: start: 20061218, end: 20070628
  2. WARFARIN SODIUM [Concomitant]
     Dosage: 5MG EVERY DAY PO
     Route: 048
     Dates: start: 20070611, end: 20070628

REACTIONS (1)
  - GASTRIC HAEMORRHAGE [None]
